FAERS Safety Report 14471182 (Version 3)
Quarter: 2021Q4

REPORT INFORMATION
  Report Type: Spontaneous
  Country: FR (occurrence: FR)
  Receive Date: 20180131
  Receipt Date: 20211206
  Transmission Date: 20220304
  Serious: Yes (Hospitalization)
  Sender: FDA-Public Use
  Company Number: None

PATIENT
  Age: 60 Year
  Sex: Female

DRUGS (28)
  1. ATRACURIUM BESYLATE [Suspect]
     Active Substance: ATRACURIUM BESYLATE
     Indication: Anaesthesia
     Dosage: 30 MG, SINGLE
     Route: 042
     Dates: start: 20160929, end: 20160929
  2. ATRACURIUM BESYLATE [Suspect]
     Active Substance: ATRACURIUM BESYLATE
     Dosage: 50 MG, SINGLE
     Route: 042
     Dates: start: 20171219, end: 20171219
  3. LIDOCAINE [Suspect]
     Active Substance: LIDOCAINE
     Dosage: 100 MG, SINGLE
     Route: 042
     Dates: start: 20160929, end: 20160929
  4. LIDOCAINE [Suspect]
     Active Substance: LIDOCAINE
     Dosage: 100 MG, SINGLE
     Route: 042
     Dates: start: 20171219, end: 20171219
  5. NEFOPAM HYDROCHLORIDE [Suspect]
     Active Substance: NEFOPAM HYDROCHLORIDE
     Indication: Anaesthesia
     Dosage: 40 MG, SINGLE
     Route: 042
     Dates: start: 20160929, end: 20160929
  6. NEFOPAM HYDROCHLORIDE [Suspect]
     Active Substance: NEFOPAM HYDROCHLORIDE
     Dosage: 100 MG, DAILY
     Route: 042
     Dates: start: 20160929, end: 20161004
  7. NEFOPAM HYDROCHLORIDE [Suspect]
     Active Substance: NEFOPAM HYDROCHLORIDE
     Dosage: 20 MG, SINGLE
     Route: 042
     Dates: start: 20171219, end: 20171219
  8. ACETAMINOPHEN [Suspect]
     Active Substance: ACETAMINOPHEN
     Indication: Pain
     Dosage: 1 G, SINGLE
     Route: 042
     Dates: start: 20160929, end: 20160929
  9. ACETAMINOPHEN [Suspect]
     Active Substance: ACETAMINOPHEN
     Dosage: 1 G, SINGLE
     Route: 042
     Dates: start: 20171219, end: 20171219
  10. KETAMINE [Suspect]
     Active Substance: KETAMINE
     Indication: Anaesthesia
     Dosage: 30 MG, SINGLE
     Route: 042
     Dates: start: 20160929, end: 20160929
  11. KETAMINE [Suspect]
     Active Substance: KETAMINE
     Dosage: 30 MG, SINGLE
     Route: 042
     Dates: start: 20171219, end: 20171219
  12. EPHEDRINE [Suspect]
     Active Substance: EPHEDRINE
     Indication: Anaesthesia
     Dosage: 12 MG, SINGLE
     Route: 042
     Dates: start: 20160929, end: 20160929
  13. EPHEDRINE [Suspect]
     Active Substance: EPHEDRINE
     Dosage: 12 MG, SINGLE
     Route: 042
     Dates: start: 20171219, end: 20171219
  14. ACUPAN [Suspect]
     Active Substance: NEFOPAM HYDROCHLORIDE
     Indication: Pain
     Dosage: 20 MG, AS NEEDED (4X/DAY)
     Route: 048
     Dates: start: 20161005, end: 20161109
  15. DROPERIDOL [Suspect]
     Active Substance: DROPERIDOL
     Indication: Anaesthesia
     Dosage: 1.25 MG, SINGLE
     Route: 042
     Dates: start: 20160929, end: 20160929
  16. DROPERIDOL [Suspect]
     Active Substance: DROPERIDOL
     Dosage: 1.25 MG, SINGLE
     Route: 042
     Dates: start: 20171219, end: 20171219
  17. CELLCEPT [Concomitant]
     Active Substance: MYCOPHENOLATE MOFETIL
     Dosage: UNK
  18. CYCLOSPORINE [Concomitant]
     Active Substance: CYCLOSPORINE
     Dosage: UNK
  19. PREDNISONE [Concomitant]
     Active Substance: PREDNISONE
     Dosage: UNK
  20. BISOPROLOL [Concomitant]
     Active Substance: BISOPROLOL
     Dosage: UNK
  21. FUROSEMIDE [Concomitant]
     Active Substance: FUROSEMIDE
     Dosage: UNK
  22. POTASSIUM CHLORIDE [Concomitant]
     Active Substance: POTASSIUM CHLORIDE
     Dosage: UNK
  23. REPAGLINIDE [Concomitant]
     Active Substance: REPAGLINIDE
     Dosage: UNK
  24. ESOMEPRAZOLE [Concomitant]
     Active Substance: ESOMEPRAZOLE
     Dosage: UNK
  25. ALLOPURINOL [Concomitant]
     Active Substance: ALLOPURINOL
     Dosage: UNK
  26. ZOPICLONE [Concomitant]
     Active Substance: ZOPICLONE
     Dosage: UNK
  27. AMITRIPTYLINE HYDROCHLORIDE [Concomitant]
     Active Substance: AMITRIPTYLINE HYDROCHLORIDE
     Dosage: UNK
  28. LATANOPROST [Concomitant]
     Active Substance: LATANOPROST
     Dosage: UNK

REACTIONS (1)
  - Mixed liver injury [Recovered/Resolved]

NARRATIVE: CASE EVENT DATE: 20161001
